FAERS Safety Report 6582185-4 (Version None)
Quarter: 2010Q1

REPORT INFORMATION
  Report Type: 
  Country: None (occurrence: None)
  Receive Date: 20100216
  Receipt Date: 20100203
  Transmission Date: 20100710
  Serious: Yes (Hospitalization)
  Sender: FDA-Public Use
  Company Number: US-JNJFOC-20061101171

PATIENT
  Sex: Male

DRUGS (8)
  1. RISPERDAL [Suspect]
     Indication: BIPOLAR DISORDER
     Route: 048
  2. RISPERDAL [Suspect]
     Indication: SCHIZOAFFECTIVE DISORDER
     Route: 048
  3. RISPERDAL [Suspect]
     Indication: SCHIZOPHRENIA
     Route: 048
  4. RISPERIDONE [Suspect]
     Indication: BIPOLAR DISORDER
     Route: 048
  5. RISPERIDONE [Suspect]
     Indication: SCHIZOAFFECTIVE DISORDER
     Route: 048
  6. RISPERIDONE [Suspect]
     Indication: SCHIZOPHRENIA
     Route: 048
  7. RISPERDAL CONSTA [Suspect]
     Indication: SCHIZOPHRENIA
     Route: 030
  8. ZYPREXA [Suspect]
     Indication: SCHIZOPHRENIA
     Dosage: 10-20 MG
     Route: 065

REACTIONS (7)
  - DIABETIC KETOACIDOSIS [None]
  - DRUG INEFFECTIVE [None]
  - HAEMATOCHEZIA [None]
  - NAUSEA [None]
  - TREATMENT NONCOMPLIANCE [None]
  - TYPE 1 DIABETES MELLITUS [None]
  - WEIGHT INCREASED [None]
